FAERS Safety Report 16077110 (Version 1)
Quarter: 2019Q2

REPORT INFORMATION
  Report Type: Spontaneous
  Country: US (occurrence: US)
  Receive Date: 20190314
  Receipt Date: 20190314
  Transmission Date: 20190711
  Serious: No
  Sender: FDA-Public Use
  Company Number: None

PATIENT
  Age: 31 Year
  Sex: Female
  Weight: 85.5 kg

DRUGS (3)
  1. ALLEGRA OTC [Concomitant]
  2. DULOXETINE. [Suspect]
     Active Substance: DULOXETINE
     Indication: MAJOR DEPRESSION
     Dates: start: 20181005, end: 20190313
  3. DULOXETINE. [Suspect]
     Active Substance: DULOXETINE
     Indication: GENERALISED ANXIETY DISORDER
     Dates: start: 20181005, end: 20190313

REACTIONS (8)
  - Cognitive disorder [None]
  - Anxiety [None]
  - Dizziness [None]
  - Paraesthesia [None]
  - Lethargy [None]
  - Drug withdrawal syndrome [None]
  - Headache [None]
  - Eye pain [None]

NARRATIVE: CASE EVENT DATE: 20190314
